FAERS Safety Report 4577473-7 (Version None)
Quarter: 2005Q1

REPORT INFORMATION
  Report Type: 
  Country: None (occurrence: None)
  Receive Date: 20050208
  Receipt Date: 20050126
  Transmission Date: 20050727
  Serious: Yes (Other)
  Sender: FDA-Public Use
  Company Number: 2005019799

PATIENT
  Age: 5 Year

DRUGS (1)
  1. UNASYN [Suspect]
     Indication: HEAD INJURY
     Dosage: SEE IMAGE

REACTIONS (1)
  - ANGIONEUROTIC OEDEMA [None]
